FAERS Safety Report 5062790-7 (Version None)
Quarter: 2006Q3

REPORT INFORMATION
  Report Type: 
  Country: None (occurrence: None)
  Receive Date: 20060724
  Receipt Date: 20060607
  Transmission Date: 20061208
  Serious: Yes (Disabling)
  Sender: FDA-Public Use
  Company Number: 2006088060

PATIENT
  Age: 18 Year
  Sex: Male
  Weight: 62 kg

DRUGS (6)
  1. ZYRTEC [Suspect]
     Indication: ECZEMA
     Dosage: 10 MG (1 IN 1 D), ORAL
     Route: 048
     Dates: start: 20060530, end: 20060530
  2. ZYRTEC [Suspect]
     Indication: RHINITIS ALLERGIC
     Dosage: 10 MG (1 IN 1 D), ORAL
     Route: 048
     Dates: start: 20060530, end: 20060530
  3. SULPIRIDE (SULPIRIDE) [Concomitant]
  4. RILMAZAFONE (RILMAZAFONE) [Concomitant]
  5. RISPERIDONE [Concomitant]
  6. KETOTIFEN FUMARTE (KETOTIFEN FUMARATE) [Concomitant]

REACTIONS (3)
  - DYSTONIA [None]
  - EDUCATIONAL PROBLEM [None]
  - MENTAL IMPAIRMENT [None]
